FAERS Safety Report 4314916-8 (Version None)
Quarter: 2004Q1

REPORT INFORMATION
  Report Type: 
  Country: None (occurrence: None)
  Receive Date: 20040310
  Receipt Date: 20040128
  Transmission Date: 20041129
  Serious: Yes (Hospitalization, Disabling, Other)
  Sender: FDA-Public Use
  Company Number: WAES 0401USA02095

PATIENT
  Age: 72 Year
  Sex: Male
  Weight: 84 kg

DRUGS (8)
  1. FOSAMAX [Concomitant]
     Route: 048
  2. ASPIRIN [Concomitant]
     Route: 048
  3. CARDURA [Concomitant]
     Route: 048
  4. PROSCAR [Suspect]
     Indication: BENIGN PROSTATIC HYPERPLASIA
     Route: 048
  5. METHOTREXATE [Concomitant]
     Route: 051
  6. PREDNISONE [Concomitant]
     Route: 048
  7. VIOXX [Concomitant]
     Route: 048
  8. ZOCOR [Concomitant]
     Route: 048

REACTIONS (1)
  - DEEP VEIN THROMBOSIS [None]
